FAERS Safety Report 5783096-4 (Version None)
Quarter: 2008Q2

REPORT INFORMATION
  Report Type: 
  Country: None (occurrence: None)
  Receive Date: 20080619
  Receipt Date: 20080613
  Transmission Date: 20081010
  Serious: Yes (Hospitalization)
  Sender: FDA-Public Use
  Company Number: 2008JP000968

PATIENT
  Age: 33 Year
  Sex: Female
  Weight: 50 kg

DRUGS (10)
  1. TACROLIMUS [Suspect]
     Indication: LUPUS NEPHRITIS
     Dosage: 0.5 MG, ORAL; 1 MG, ORAL; 2 MG, ORAL
     Route: 048
     Dates: start: 20070919, end: 20071002
  2. TACROLIMUS [Suspect]
     Indication: LUPUS NEPHRITIS
     Dosage: 0.5 MG, ORAL; 1 MG, ORAL; 2 MG, ORAL
     Route: 048
     Dates: start: 20071003, end: 20071127
  3. TACROLIMUS [Suspect]
     Indication: LUPUS NEPHRITIS
     Dosage: 0.5 MG, ORAL; 1 MG, ORAL; 2 MG, ORAL
     Route: 048
     Dates: start: 20071128
  4. PREDNISOLONE [Suspect]
     Indication: LUPUS NEPHRITIS
     Dosage: 25 MG, ORAL; 22.5 MG, ORAL; 20 MG, ORAL; 17.5 MG, ORAL
     Route: 048
     Dates: end: 20071002
  5. PREDNISOLONE [Suspect]
     Indication: LUPUS NEPHRITIS
     Dosage: 25 MG, ORAL; 22.5 MG, ORAL; 20 MG, ORAL; 17.5 MG, ORAL
     Route: 048
     Dates: start: 20071003, end: 20071030
  6. PREDNISOLONE [Suspect]
     Indication: LUPUS NEPHRITIS
     Dosage: 25 MG, ORAL; 22.5 MG, ORAL; 20 MG, ORAL; 17.5 MG, ORAL
     Route: 048
     Dates: start: 20071031, end: 20071127
  7. PREDNISOLONE [Suspect]
     Indication: LUPUS NEPHRITIS
     Dosage: 25 MG, ORAL; 22.5 MG, ORAL; 20 MG, ORAL; 17.5 MG, ORAL
     Route: 048
     Dates: start: 20071128
  8. LOSARTAN POTASSIUM [Concomitant]
  9. LANSOPRAZOLE [Concomitant]
  10. ALFAROL (ALFACALCIDOL) [Concomitant]

REACTIONS (3)
  - ALTERED STATE OF CONSCIOUSNESS [None]
  - CHEST PAIN [None]
  - SUICIDE ATTEMPT [None]
